FAERS Safety Report 15325686 (Version 1)
Quarter: 2018Q3

REPORT INFORMATION
  Report Type: Spontaneous
  Country: US (occurrence: US)
  Receive Date: 20180822
  Receipt Date: 20180822
  Transmission Date: 20181010
  Serious: Yes (Hospitalization)
  Sender: FDA-Public Use
  Company Number: None

PATIENT
  Sex: Female

DRUGS (16)
  1. ALLOPURINOL. [Concomitant]
     Active Substance: ALLOPURINOL
  2. POT CL MICRO [Concomitant]
  3. ASPIRIN. [Concomitant]
     Active Substance: ASPIRIN
  4. ACETAZOLAMID [Concomitant]
     Active Substance: ACETAZOLAMIDE
  5. GABAPENTIN. [Concomitant]
     Active Substance: GABAPENTIN
  6. ORENITRAM [Concomitant]
     Active Substance: TREPROSTINIL
  7. HUMALOG [Concomitant]
     Active Substance: INSULIN LISPRO
  8. NOVOLOG [Concomitant]
     Active Substance: INSULIN ASPART
  9. SIMVASTATIN. [Concomitant]
     Active Substance: SIMVASTATIN
  10. SPIRONOLACT [Concomitant]
     Active Substance: SPIRONOLACTONE
  11. TORSEMIDE. [Concomitant]
     Active Substance: TORSEMIDE
  12. ADCIRCA [Suspect]
     Active Substance: TADALAFIL
     Indication: PULMONARY ARTERIAL HYPERTENSION
     Route: 048
     Dates: start: 20150515
  13. FLUOXETINE [Concomitant]
     Active Substance: FLUOXETINE HYDROCHLORIDE
  14. LANTUS [Concomitant]
     Active Substance: INSULIN GLARGINE
  15. METOPROL SUC [Concomitant]
  16. SILDENAFIL. [Concomitant]
     Active Substance: SILDENAFIL

REACTIONS (1)
  - Drug ineffective [None]
